FAERS Safety Report 4677457-4 (Version None)
Quarter: 2005Q2

REPORT INFORMATION
  Report Type: 
  Country: None (occurrence: None)
  Receive Date: 20050531
  Receipt Date: 20050523
  Transmission Date: 20051028
  Serious: Yes (Other)
  Sender: FDA-Public Use
  Company Number: PHEH2005US05827

PATIENT
  Age: 62 Year
  Sex: Female

DRUGS (1)
  1. AREDIA [Suspect]
     Indication: BREAST CANCER

REACTIONS (9)
  - ABSCESS ORAL [None]
  - ASEPTIC NECROSIS BONE [None]
  - BONE DISORDER [None]
  - DENTAL CARIES [None]
  - FISTULA [None]
  - ORAL SURGERY [None]
  - PAIN [None]
  - PERIODONTAL DISEASE [None]
  - TOOTH EXTRACTION [None]
